FAERS Safety Report 24576028 (Version 3)
Quarter: 2025Q4

REPORT INFORMATION
  Report Type: Report from Study
  Country: US (occurrence: US)
  Receive Date: 20241104
  Receipt Date: 20251231
  Transmission Date: 20260118
  Serious: No
  Sender: TRAVERE THERAPEUTICS
  Company Number: US-TRAVERE-2024TVT01058

PATIENT
  Age: 56 Year
  Sex: Male
  Weight: 111.13 kg

DRUGS (2)
  1. FILSPARI [Suspect]
     Active Substance: SPARSENTAN
     Indication: IgA nephropathy
     Route: 048
     Dates: start: 20240710
  2. FILSPARI [Suspect]
     Active Substance: SPARSENTAN
     Dosage: LOT NUMBER: 1979025, EXPIRY DATE: 30-AUG-2026
     Route: 048
     Dates: start: 20240810

REACTIONS (4)
  - Liver function test increased [None]
  - Protein total increased [None]
  - Pruritus [None]
  - Photosensitivity reaction [Unknown]

NARRATIVE: CASE EVENT DATE: 20251028
